FAERS Safety Report 6402804-2 (Version None)
Quarter: 2009Q4

REPORT INFORMATION
  Report Type: 
  Country: None (occurrence: None)
  Receive Date: 20091016
  Receipt Date: 20070724
  Transmission Date: 20100525
  Serious: Yes (Disabling)
  Sender: FDA-Public Use
  Company Number: US-ASTRAZENECA-2006UW08260

PATIENT
  Sex: Female
  Weight: 88 kg

DRUGS (20)
  1. SEROQUEL [Suspect]
     Indication: MENTAL DISORDER
     Dosage: 100 MG TO 300 MG
     Route: 048
     Dates: start: 20020305
  2. SEROQUEL [Suspect]
     Indication: DEPRESSION
     Dosage: 100 MG TO 300 MG
     Route: 048
     Dates: start: 20020305
  3. LIPITOR [Concomitant]
     Route: 048
  4. LOPRESSOR [Concomitant]
     Route: 048
  5. DESYREL [Concomitant]
     Dosage: 50 MG-150 MG
     Route: 048
  6. DILANTIN [Concomitant]
     Route: 048
  7. MS CONTIN [Concomitant]
     Route: 048
  8. NEURONTIN [Concomitant]
     Route: 048
  9. CELEXA [Concomitant]
     Route: 048
  10. LORTAB [Concomitant]
     Dosage: 5/500 MG, 10/500 MG
     Route: 048
  11. PRILOSEC [Concomitant]
     Route: 048
  12. VALIUM [Concomitant]
     Route: 048
  13. NITROSTAT [Concomitant]
     Route: 048
  14. LAMISIL [Concomitant]
     Route: 048
  15. PREDNISONE [Concomitant]
     Dosage: 10 MG-50 MG
     Route: 048
  16. PRINIVIL [Concomitant]
     Route: 048
  17. BIAXIN [Concomitant]
     Route: 048
  18. KEFLEX [Concomitant]
     Route: 048
  19. PEPCID [Concomitant]
     Route: 048
  20. OXYCODONE [Concomitant]
     Route: 048

REACTIONS (1)
  - ILL-DEFINED DISORDER [None]
